FAERS Safety Report 24034751 (Version 1)
Quarter: 2024Q2

REPORT INFORMATION
  Report Type: Spontaneous
  Country: US (occurrence: None)
  Receive Date: 20240628
  Receipt Date: 20240628
  Transmission Date: 20240715
  Serious: Yes (Other)
  Sender: FDA-Public Use
  Company Number: None

PATIENT
  Age: 60 Year
  Sex: Female
  Weight: 94.5 kg

DRUGS (1)
  1. TRULICITY [Suspect]
     Active Substance: DULAGLUTIDE
     Dosage: WEEKLLY SUBCUTANEOUS?
     Route: 058
     Dates: start: 20190603, end: 20240415

REACTIONS (1)
  - Thyroid cancer [None]

NARRATIVE: CASE EVENT DATE: 20240624
